FAERS Safety Report 7310046-1 (Version None)
Quarter: 2011Q1

REPORT INFORMATION
  Report Type: 
  Country: None (occurrence: None)
  Receive Date: 20110224
  Receipt Date: 20110216
  Transmission Date: 20110831
  Serious: Yes (Other)
  Sender: FDA-Public Use
  Company Number: PHHY2010DE62512

PATIENT
  Sex: Female

DRUGS (3)
  1. EXTAVIA [Suspect]
     Dosage: 1 ML/DAY
     Route: 058
     Dates: end: 20100901
  2. EXTAVIA [Suspect]
     Dosage: 0.5 ML/DAY
     Route: 058
     Dates: end: 20100916
  3. EXTAVIA [Suspect]
     Indication: MULTIPLE SCLEROSIS
     Dosage: 1 ML, QD
     Route: 058
     Dates: start: 20100719

REACTIONS (4)
  - PYREXIA [None]
  - PANIC ATTACK [None]
  - MUSCLE SPASMS [None]
  - ABASIA [None]
